FAERS Safety Report 16985131 (Version 1)
Quarter: 2019Q4

REPORT INFORMATION
  Report Type: Report from Study
  Country: US (occurrence: US)
  Receive Date: 20191101
  Receipt Date: 20191101
  Transmission Date: 20200122
  Serious: Yes (Hospitalization)
  Sender: FDA-Public Use
  Company Number: US-ADAMAS PHARMA, LLC-2019ADA02377

PATIENT
  Sex: Male

DRUGS (9)
  1. RYTARY [Concomitant]
     Active Substance: CARBIDOPA\LEVODOPA
  2. METOPROLOL. [Concomitant]
     Active Substance: METOPROLOL
  3. AZILECT [Concomitant]
     Active Substance: RASAGILINE MESYLATE
  4. FINASTERIDE. [Concomitant]
     Active Substance: FINASTERIDE
  5. CLOPIDOGREL [Concomitant]
     Active Substance: CLOPIDOGREL BISULFATE
  6. TROSPIUM [Concomitant]
     Active Substance: TROSPIUM
  7. ATORVASTATIN [Concomitant]
     Active Substance: ATORVASTATIN
  8. GOCOVRI [Suspect]
     Active Substance: AMANTADINE
     Indication: DYSKINESIA
     Dosage: 274 MG, 1X/DAY, AT BEDTIME
     Route: 048
     Dates: start: 20190413, end: 2019
  9. NEUPRO [Concomitant]
     Active Substance: ROTIGOTINE

REACTIONS (5)
  - Dementia [Not Recovered/Not Resolved]
  - Dissociative identity disorder [Not Recovered/Not Resolved]
  - Near death experience [Not Recovered/Not Resolved]
  - Illusion [Not Recovered/Not Resolved]
  - Unevaluable event [Not Recovered/Not Resolved]

NARRATIVE: CASE EVENT DATE: 2019
